FAERS Safety Report 9633029 (Version 1)
Quarter: 2013Q4

REPORT INFORMATION
  Report Type: Spontaneous
  Country: US (occurrence: US)
  Receive Date: 20131018
  Receipt Date: 20131018
  Transmission Date: 20140711
  Serious: No
  Sender: FDA-Public Use
  Company Number: US-B.I. PHARMACEUTICALS,INC./RIDGEFIELD-2013-BI-31678BP

PATIENT
  Age: 47 Year
  Sex: Female

DRUGS (2)
  1. SPIRIVA [Suspect]
     Indication: BRONCHITIS
     Dosage: 18 MCG
     Route: 055
  2. ADVAIR [Concomitant]
     Route: 055

REACTIONS (8)
  - Chest discomfort [Recovered/Resolved]
  - Panic reaction [Recovered/Resolved]
  - Suffocation feeling [Recovered/Resolved]
  - Hypopnoea [Not Recovered/Not Resolved]
  - Respiratory rate increased [Recovered/Resolved]
  - Blood pressure increased [Recovered/Resolved]
  - Dyspnoea [Recovered/Resolved]
  - Off label use [Recovered/Resolved]
